FAERS Safety Report 13274635 (Version 1)
Quarter: 2017Q1

REPORT INFORMATION
  Report Type: Other
  Country: IT (occurrence: IT)
  Receive Date: 20170227
  Receipt Date: 20170227
  Transmission Date: 20170428
  Serious: Yes (Death)
  Sender: FDA-Public Use
  Company Number: IT-GE HEALTHCARE LIFE SCIENCES-OMPQ-PR-1612S-2289

PATIENT

DRUGS (1)
  1. OMNIPAQUE [Suspect]
     Active Substance: IOHEXOL
     Indication: BREAST CANCER METASTATIC
     Dosage: UNK UNK, SINGLE
     Route: 042
     Dates: start: 20161201, end: 20161201

REACTIONS (3)
  - Hypertension [Fatal]
  - Haemoptysis [Fatal]
  - Dyspnoea [Fatal]

NARRATIVE: CASE EVENT DATE: 20161201
